FAERS Safety Report 4631571-8 (Version None)
Quarter: 2005Q2

REPORT INFORMATION
  Report Type: 
  Country: None (occurrence: None)
  Receive Date: 20050407
  Receipt Date: 20050324
  Transmission Date: 20051028
  Serious: Yes (Hospitalization)
  Sender: FDA-Public Use
  Company Number: 2004IM000667

PATIENT
  Age: 5 Year
  Sex: Male

DRUGS (1)
  1. ACTIMMUNE [Suspect]
     Indication: CHRONIC GRANULOMATOUS DISEASE
     Dosage: 40 UG, TIW, SUBCUTANEOUS
     Route: 058
     Dates: start: 20021011

REACTIONS (2)
  - CENTRAL LINE INFECTION [None]
  - ENTEROBACTER INFECTION [None]
